FAERS Safety Report 8290153-X (Version None)
Quarter: 2012Q2

REPORT INFORMATION
  Report Type: 
  Country: None (occurrence: None)
  Receive Date: 20120412
  Receipt Date: 20120412
  Transmission Date: 20120825
  Serious: Yes (Hospitalization)
  Sender: FDA-Public Use
  Company Number: None

PATIENT
  Age: 54 Year
  Sex: Male
  Weight: 87.3 kg

DRUGS (1)
  1. CARBAMAZEPINE [Suspect]
     Dosage: 600 MG BID PO
     Route: 048
     Dates: start: 20090106, end: 20111213

REACTIONS (5)
  - DIZZINESS [None]
  - VOMITING [None]
  - NAUSEA [None]
  - TOXICITY TO VARIOUS AGENTS [None]
  - ELECTROCARDIOGRAM CHANGE [None]
